FAERS Safety Report 5076592-9 (Version None)
Quarter: 2006Q3

REPORT INFORMATION
  Report Type: 
  Country: None (occurrence: None)
  Receive Date: 20060725
  Receipt Date: 20060306
  Transmission Date: 20061208
  Serious: No
  Sender: FDA-Public Use
  Company Number: 200611353BWH

PATIENT
  Sex: Male

DRUGS (1)
  1. NEXAVAR [Suspect]
     Indication: RENAL CELL CARCINOMA STAGE UNSPECIFIED
     Dosage: ORAL
     Route: 048

REACTIONS (3)
  - ASTHENIA [None]
  - FATIGUE [None]
  - GASTROINTESTINAL DISORDER [None]
